FAERS Safety Report 9896098 (Version 1)
Quarter: 2014Q1

REPORT INFORMATION
  Report Type: Spontaneous
  Country: US (occurrence: US)
  Receive Date: 20140213
  Receipt Date: 20140213
  Transmission Date: 20141002
  Serious: No
  Sender: FDA-Public Use
  Company Number: US-BRISTOL-MYERS SQUIBB COMPANY-19593409

PATIENT
  Age: 52 Year
  Sex: Female

DRUGS (25)
  1. ORENCIA [Suspect]
  2. TETRACYCLINE [Suspect]
  3. MULTIVITAMINS [Concomitant]
  4. LANTUS [Concomitant]
  5. HUMALOG [Concomitant]
  6. BYETTA [Concomitant]
  7. GABAPENTIN [Concomitant]
     Dosage: TABS
  8. ZYRTEC [Concomitant]
  9. LISINOPRIL + HCTZ [Concomitant]
     Dosage: TABS
  10. FOLIC ACID [Concomitant]
     Dosage: TABS
  11. NEXIUM [Concomitant]
  12. METFORMIN HCL [Concomitant]
     Dosage: TABS
  13. B COMPLEX 100 [Concomitant]
     Dosage: TABS
  14. VITAMIN C [Concomitant]
     Dosage: TABS
  15. SINGULAIR [Concomitant]
     Dosage: TABS
  16. ESTROVEN [Concomitant]
  17. MOBIC [Concomitant]
     Dosage: TABS
  18. LIPITOR [Concomitant]
     Dosage: TABS
  19. TYLENOL [Concomitant]
  20. LORAZEPAM [Concomitant]
     Dosage: TABS
  21. MELATONIN [Concomitant]
     Dosage: TABS
  22. SOMA [Concomitant]
     Dosage: TABS
  23. PERCOCET [Concomitant]
  24. TRAZODONE HCL [Concomitant]
     Dosage: TABS
  25. PREDNISONE [Concomitant]
     Dosage: TABSQ

REACTIONS (1)
  - Hypersensitivity [Unknown]
